FAERS Safety Report 14599344 (Version 1)
Quarter: 2018Q1

REPORT INFORMATION
  Report Type: Report from Study
  Country: US (occurrence: US)
  Receive Date: 20180305
  Receipt Date: 20180305
  Transmission Date: 20180509
  Serious: Yes (Hospitalization, Other)
  Sender: FDA-Public Use
  Company Number: US-BRISTOL-MYERS SQUIBB COMPANY-BMS-2018-017867

PATIENT
  Age: 66 Year
  Sex: Female
  Weight: 61.4 kg

DRUGS (3)
  1. DASATINIB. [Suspect]
     Active Substance: DASATINIB
     Indication: ACUTE LYMPHOCYTIC LEUKAEMIA
     Dosage: 140 MG, UNK
     Route: 048
     Dates: start: 20160915, end: 20170723
  2. BLINATUMOMAB [Suspect]
     Active Substance: BLINATUMOMAB
     Indication: ACUTE LYMPHOCYTIC LEUKAEMIA
     Dosage: 28 ?G, UNK
     Route: 042
     Dates: start: 20161213, end: 20170330
  3. PREDNISONE. [Suspect]
     Active Substance: PREDNISONE
     Indication: ACUTE LYMPHOCYTIC LEUKAEMIA
     Dosage: 60 MG, UNK
     Route: 048
     Dates: start: 20160915, end: 20170717

REACTIONS (4)
  - Lung infection [Unknown]
  - Lymphocyte count increased [Recovered/Resolved]
  - Pericardial effusion [Unknown]
  - Colitis [Unknown]

NARRATIVE: CASE EVENT DATE: 20170724
